FAERS Safety Report 19451027 (Version 2)
Quarter: 2021Q3

REPORT INFORMATION
  Report Type: Report from Study
  Country: ES (occurrence: ES)
  Receive Date: 20210622
  Receipt Date: 20210702
  Transmission Date: 20211014
  Serious: Yes (Hospitalization)
  Sender: FDA-Public Use
  Company Number: ES-CELGENEUS-ESP-20200704468

PATIENT
  Age: 74 Year
  Sex: Male
  Weight: 80 kg

DRUGS (28)
  1. AZACITIDINE. [Suspect]
     Active Substance: AZACITIDINE
     Indication: ACUTE MYELOID LEUKAEMIA
     Dosage: 150 MILLIGRAM
     Route: 058
     Dates: start: 20181015, end: 20181206
  2. AZACITIDINE. [Suspect]
     Active Substance: AZACITIDINE
     Dosage: 146.25 MILLIGRAM
     Route: 058
     Dates: start: 20190415, end: 20190416
  3. AZACITIDINE. [Suspect]
     Active Substance: AZACITIDINE
     Dosage: 149.2 MILLIGRAM
     Route: 058
     Dates: start: 20200608, end: 20200616
  4. CITALOPRAM [Concomitant]
     Active Substance: CITALOPRAM HYDROBROMIDE
     Indication: PRODUCT USED FOR UNKNOWN INDICATION
     Route: 065
     Dates: start: 20200504
  5. ALOPURINOL [Concomitant]
     Active Substance: ALLOPURINOL
     Indication: PRODUCT USED FOR UNKNOWN INDICATION
     Route: 065
     Dates: start: 20181112
  6. METAMIZOL [Concomitant]
     Active Substance: METAMIZOLE SODIUM
     Indication: PRODUCT USED FOR UNKNOWN INDICATION
     Route: 065
     Dates: start: 20200709, end: 20200713
  7. AZACITIDINE. [Suspect]
     Active Substance: AZACITIDINE
     Dosage: 145.5 MILLIGRAM
     Route: 058
     Dates: start: 20190506, end: 20190806
  8. AZACITIDINE. [Suspect]
     Active Substance: AZACITIDINE
     Route: 058
     Dates: end: 20200706
  9. AZACITIDINE. [Suspect]
     Active Substance: AZACITIDINE
     Route: 058
     Dates: start: 20200720
  10. OMEPRAZOLE. [Concomitant]
     Active Substance: OMEPRAZOLE
     Indication: PRODUCT USED FOR UNKNOWN INDICATION
     Route: 065
     Dates: start: 2018
  11. INSULIN [Concomitant]
     Active Substance: INSULIN NOS
     Indication: PRODUCT USED FOR UNKNOWN INDICATION
     Route: 065
     Dates: start: 20181125
  12. DIBEN DRINK [Concomitant]
     Indication: PRODUCT USED FOR UNKNOWN INDICATION
     Route: 065
     Dates: start: 20200407
  13. AZACITIDINE. [Suspect]
     Active Substance: AZACITIDINE
     Dosage: 145.5 MILLIGRAM
     Route: 058
     Dates: start: 20190304, end: 20190312
  14. AZACITIDINE. [Suspect]
     Active Substance: AZACITIDINE
     Dosage: 149.2 MILLIGRAM
     Route: 058
     Dates: start: 20200720
  15. MEGESTROL ACETATE. [Concomitant]
     Active Substance: MEGESTROL ACETATE
     Indication: PRODUCT USED FOR UNKNOWN INDICATION
     Route: 065
     Dates: start: 20181223
  16. AZACITIDINE. [Suspect]
     Active Substance: AZACITIDINE
     Dosage: 149.2 MILLIGRAM
     Route: 058
     Dates: start: 20190916, end: 20191022
  17. AZACITIDINE. [Suspect]
     Active Substance: AZACITIDINE
     Dosage: 147 MILLIGRAM
     Route: 058
     Dates: start: 20200210, end: 20200520
  18. METFORMIN [Concomitant]
     Active Substance: METFORMIN HYDROCHLORIDE
     Indication: PRODUCT USED FOR UNKNOWN INDICATION
     Route: 065
     Dates: start: 20181212
  19. ENANTYUM [Concomitant]
     Active Substance: DEXKETOPROFEN TROMETAMOL
     Indication: PRODUCT USED FOR UNKNOWN INDICATION
     Route: 065
     Dates: start: 20200708, end: 20200713
  20. AZACITIDINE. [Suspect]
     Active Substance: AZACITIDINE
     Dosage: 150 MILLIGRAM
     Route: 058
     Dates: start: 20191125, end: 20191231
  21. NOCTAMID [Concomitant]
     Active Substance: LORMETAZEPAM
     Indication: PRODUCT USED FOR UNKNOWN INDICATION
     Route: 065
     Dates: start: 20181028
  22. DIAZEPAM. [Concomitant]
     Active Substance: DIAZEPAM
     Indication: PRODUCT USED FOR UNKNOWN INDICATION
     Route: 065
     Dates: start: 20181202
  23. AG?120 [Suspect]
     Active Substance: IVOSIDENIB
     Dosage: UNKNOWN
     Route: 048
     Dates: start: 20200720
  24. LORMETAZEPAM [Concomitant]
     Active Substance: LORMETAZEPAM
     Indication: PRODUCT USED FOR UNKNOWN INDICATION
     Route: 065
     Dates: start: 20181028
  25. AZACITIDINE. [Suspect]
     Active Substance: AZACITIDINE
     Dosage: 144 MILLIGRAM
     Route: 058
     Dates: start: 20190204, end: 20190212
  26. AZACITIDINE. [Suspect]
     Active Substance: AZACITIDINE
     Dosage: 146.26 MILLIGRAM
     Route: 058
     Dates: start: 20190408, end: 20190412
  27. AZACITIDINE. [Suspect]
     Active Substance: AZACITIDINE
     Dosage: 143.25 MILLIGRAM
     Route: 058
     Dates: start: 20181231, end: 20190108
  28. AG?120 [Suspect]
     Active Substance: IVOSIDENIB
     Indication: ACUTE MYELOID LEUKAEMIA
     Dosage: 500 MILLIGRAM
     Route: 048
     Dates: start: 20181015, end: 20200705

REACTIONS (1)
  - Febrile neutropenia [Recovered/Resolved]

NARRATIVE: CASE EVENT DATE: 20200706
